FAERS Safety Report 6689547-5 (Version None)
Quarter: 2010Q2

REPORT INFORMATION
  Report Type: 
  Country: None (occurrence: None)
  Receive Date: 20100421
  Receipt Date: 20100413
  Transmission Date: 20101027
  Serious: No
  Sender: FDA-Public Use
  Company Number: US-BIOGENIDEC-2010BI012711

PATIENT
  Age: 60 Year
  Sex: Female

DRUGS (5)
  1. TYSABRI [Suspect]
     Indication: MULTIPLE SCLEROSIS
     Route: 042
     Dates: start: 20050203, end: 20050201
  2. TYSABRI [Suspect]
     Route: 042
     Dates: start: 20070403
  3. BACLOFEN [Concomitant]
     Indication: MUSCLE SPASMS
  4. VALIUM [Concomitant]
     Indication: MUSCLE SPASMS
  5. MEDICATIONS (NOS) [Concomitant]
     Indication: MUSCLE SPASMS

REACTIONS (3)
  - GAIT DISTURBANCE [None]
  - MUSCLE SPASMS [None]
  - SCOLIOSIS [None]
